FAERS Safety Report 8131158-9 (Version None)
Quarter: 2012Q1

REPORT INFORMATION
  Report Type: 
  Country: None (occurrence: None)
  Receive Date: 20120209
  Receipt Date: 20120209
  Transmission Date: 20120608
  Serious: Yes (Other)
  Sender: FDA-Public Use
  Company Number: None

PATIENT
  Sex: Male

DRUGS (2)
  1. VESICARE [Suspect]
     Indication: HYPERTONIC BLADDER
     Dosage: 5MG ONE DAILY PO
     Route: 048
  2. VESICARE [Suspect]
     Indication: HYPERTONIC BLADDER
     Dosage: 5MG ONE DAILY PO
     Route: 048

REACTIONS (3)
  - OEDEMA MOUTH [None]
  - LIP SWELLING [None]
  - PRODUCT QUALITY ISSUE [None]
